FAERS Safety Report 6014790-8 (Version None)
Quarter: 2008Q4

REPORT INFORMATION
  Report Type: 
  Country: None (occurrence: None)
  Receive Date: 20081219
  Receipt Date: 20081216
  Transmission Date: 20090506
  Serious: Yes (Life-Threatening, Hospitalization)
  Sender: FDA-Public Use
  Company Number: PHHY2008JP28451

PATIENT
  Age: 83 Year
  Sex: Male

DRUGS (1)
  1. DIOVAN [Suspect]
     Indication: HYPERTENSION
     Dosage: 80 MG, QD
     Route: 048

REACTIONS (8)
  - BRADYCARDIA [None]
  - CARDIAC FAILURE [None]
  - HEART RATE DECREASED [None]
  - HYPERKALAEMIA [None]
  - MALAISE [None]
  - PALLOR [None]
  - RENAL FAILURE [None]
  - SHOCK [None]
